FAERS Safety Report 10884549 (Version 1)
Quarter: 2015Q1

REPORT INFORMATION
  Report Type: Spontaneous
  Country: US (occurrence: None)
  Receive Date: 20150227
  Receipt Date: 20150227
  Transmission Date: 20150721
  Serious: Yes (Life-Threatening)
  Sender: FDA-Public Use
  Company Number: None

PATIENT
  Age: 81 Year
  Sex: Female
  Weight: 81.65 kg

DRUGS (16)
  1. LATANOPROST OPHTHALMIC SOLUTION 0.005% [Suspect]
     Active Substance: LATANOPROST
     Dosage: 1 DROP IN EACH EYE 1X DAY
     Route: 047
  2. CALCIUM [Concomitant]
     Active Substance: CALCIUM
  3. MULTIPLE VITAMIN [Concomitant]
     Active Substance: VITAMINS
  4. LEVOTHYROXIN 100MG [Suspect]
     Active Substance: LEVOTHYROXINE
  5. ASPIRIN. [Concomitant]
     Active Substance: ASPIRIN
  6. PREVAGER [Concomitant]
  7. IRON [Concomitant]
     Active Substance: IRON
  8. MELATONIN [Concomitant]
     Active Substance: MELATONIN
  9. CHONDROITIN [Concomitant]
     Active Substance: CHONDROITIN
  10. POTASSIUM [Concomitant]
     Active Substance: POTASSIUM
  11. ZINC [Concomitant]
     Active Substance: ZINC\ZINC CHLORIDE
  12. CLOBETASOL PROPIONATE OINTMENT USP 0.05% [Suspect]
     Active Substance: CLOBETASOL PROPIONATE
     Indication: ACARODERMATITIS
     Dosage: THIN LAYER ON SKIN
     Route: 061
     Dates: start: 20141031, end: 20141101
  13. MAGNESIUM [Concomitant]
     Active Substance: MAGNESIUM
  14. GLUCOSAMINE [Concomitant]
     Active Substance: GLUCOSAMINE
  15. COCONUT OIL [Concomitant]
     Active Substance: COCONUT OIL
  16. OMEGA-3 FISH OIL [Concomitant]
     Active Substance: FISH OIL\OMEGA-3 FATTY ACIDS

REACTIONS (1)
  - Dyspnoea [None]

NARRATIVE: CASE EVENT DATE: 20141101
